FAERS Safety Report 6942858-8 (Version None)
Quarter: 2010Q3

REPORT INFORMATION
  Report Type: 
  Country: None (occurrence: None)
  Receive Date: 20100826
  Receipt Date: 20100812
  Transmission Date: 20110219
  Serious: Yes (Hospitalization, Other)
  Sender: FDA-Public Use
  Company Number: US-ELI_LILLY_AND_COMPANY-US201008004667

PATIENT
  Age: 56 Year
  Sex: Female

DRUGS (3)
  1. ZYPREXA [Suspect]
     Indication: BIPOLAR DISORDER
     Dosage: UNK, UNKNOWN
     Route: 065
  2. GEODON [Concomitant]
  3. SEROQUEL [Concomitant]

REACTIONS (15)
  - ABNORMAL BEHAVIOUR [None]
  - APHASIA [None]
  - ASTHENIA [None]
  - COMA [None]
  - ENDOTRACHEAL INTUBATION [None]
  - HALLUCINATION [None]
  - INTENTIONAL OVERDOSE [None]
  - MASKED FACIES [None]
  - MUSCLE RIGIDITY [None]
  - NERVE INJURY [None]
  - OESOPHAGEAL INJURY [None]
  - SUICIDE ATTEMPT [None]
  - SYNCOPE [None]
  - TARDIVE DYSKINESIA [None]
  - TREMOR [None]
